FAERS Safety Report 7424234-7 (Version None)
Quarter: 2011Q2

REPORT INFORMATION
  Report Type: 
  Country: None (occurrence: None)
  Receive Date: 20110411
  Receipt Date: 20110328
  Transmission Date: 20111010
  Serious: Yes (Hospitalization)
  Sender: FDA-Public Use
  Company Number: DAV-AE-MTX-11-020

PATIENT
  Age: 7 Year
  Sex: Female

DRUGS (8)
  1. CYTARABINE [Concomitant]
  2. MERCAPTOPURINE [Concomitant]
  3. VINCRISTINE [Concomitant]
  4. DAUNORUBICIN [Concomitant]
  5. PREDNISONE [Concomitant]
  6. ASPARAGINASE [Concomitant]
  7. METHOTREXATE [Suspect]
     Indication: ACUTE LYMPHOCYTIC LEUKAEMIA
     Dosage: INTRATHECAL 10-12MG
     Route: 037
  8. CYCLOPHOSPHAMIDE [Concomitant]

REACTIONS (8)
  - NEUTROPENIA [None]
  - MUTISM [None]
  - CANDIDA PNEUMONIA [None]
  - CANDIDA SEPSIS [None]
  - CONVULSION [None]
  - BRONCHITIS [None]
  - ENCEPHALITIC INFECTION [None]
  - SUBCLAVIAN VEIN THROMBOSIS [None]
